FAERS Safety Report 19550708 (Version 2)
Quarter: 2022Q1

REPORT INFORMATION
  Report Type: Spontaneous
  Country: US (occurrence: US)
  Receive Date: 20210714
  Receipt Date: 20220228
  Transmission Date: 20220423
  Serious: No
  Sender: FDA-Public Use
  Company Number: US-BLUEPRINT MEDICINES CORPORATION-SP-US-2021-001037

PATIENT
  Age: 51 Year
  Sex: Female

DRUGS (2)
  1. AYVAKIT [Suspect]
     Active Substance: AVAPRITINIB
     Indication: Systemic mastocytosis
     Route: 048
  2. AYVAKIT [Suspect]
     Active Substance: AVAPRITINIB
     Route: 048
     Dates: start: 20210709

REACTIONS (10)
  - Vertigo [Unknown]
  - Visual impairment [Unknown]
  - Bone pain [Unknown]
  - Diarrhoea [Unknown]
  - Abdominal pain upper [Unknown]
  - Hair colour changes [Unknown]
  - Off label use [Unknown]
  - Neuralgia [Unknown]
  - Dry skin [Unknown]
  - Magnetic resonance imaging abnormal [Unknown]
